FAERS Safety Report 22288505 (Version 1)
Quarter: 2023Q2

REPORT INFORMATION
  Report Type: Spontaneous
  Country: US (occurrence: US)
  Receive Date: 20230505
  Receipt Date: 20230505
  Transmission Date: 20230722
  Serious: Yes (Other)
  Sender: FDA-Public Use
  Company Number: US-PFIZER INC-202300175981

PATIENT
  Age: 59 Year
  Sex: Male

DRUGS (2)
  1. BRAFTOVI [Suspect]
     Active Substance: ENCORAFENIB
     Indication: Malignant melanoma
     Dosage: 225 MG, 1X/DAY (3 CAPSULES, ONCE A DAY)
     Route: 048
     Dates: start: 202211
  2. MEKTOVI [Concomitant]
     Active Substance: BINIMETINIB
     Indication: Neoplasm malignant
     Dosage: 15 MG, 2X/DAY

REACTIONS (2)
  - Product use complaint [Unknown]
  - Foreign body in throat [Unknown]

NARRATIVE: CASE EVENT DATE: 20230401
